FAERS Safety Report 8053303-6 (Version None)
Quarter: 2011Q4

REPORT INFORMATION
  Report Type: 
  Country: None (occurrence: None)
  Receive Date: 20111213
  Receipt Date: 20110901
  Transmission Date: 20120403
  Serious: No
  Sender: FDA-Public Use
  Company Number: 2011SP041522

PATIENT
  Sex: Male

DRUGS (4)
  1. TOPAMAX [Concomitant]
  2. SAPHRIS [Suspect]
     Indication: PRODUCT USED FOR UNKNOWN INDICATION
     Dosage: 5 MG;BID;SL
     Route: 060
     Dates: start: 20110307
  3. KLONOPIN [Concomitant]
  4. CARISOMA [Concomitant]

REACTIONS (1)
  - DENTAL CARIES [None]
